FAERS Safety Report 6693945-3 (Version None)
Quarter: 2010Q2

REPORT INFORMATION
  Report Type: 
  Country: None (occurrence: None)
  Receive Date: 20100423
  Receipt Date: 20100412
  Transmission Date: 20101027
  Serious: Yes (Hospitalization, Other)
  Sender: FDA-Public Use
  Company Number: US-PFIZER INC-2010047809

PATIENT
  Sex: Female
  Weight: 145.13 kg

DRUGS (6)
  1. XANAX [Suspect]
     Indication: ANXIETY
     Dosage: 1 MG, 4X/DAY AS NEEDED
  2. PRISTIQ [Suspect]
     Indication: MAJOR DEPRESSION
     Dosage: 50 MG, DAILY
     Route: 048
     Dates: start: 20100301
  3. LYRICA [Concomitant]
     Dosage: UNK
  4. ABILIFY [Concomitant]
     Dosage: UNK
  5. TYLENOL W/ CODEINE [Concomitant]
     Indication: MIGRAINE
     Dosage: AS NEEDED
  6. PROZAC [Concomitant]
     Dosage: UNK

REACTIONS (13)
  - ANXIETY [None]
  - BLOOD PRESSURE INCREASED [None]
  - CONTUSION [None]
  - CRYING [None]
  - DRUG INEFFECTIVE [None]
  - EMOTIONAL DISORDER [None]
  - HEADACHE [None]
  - INSOMNIA [None]
  - IRRITABILITY [None]
  - MANIA [None]
  - MUSCLE SPASMS [None]
  - RESTLESSNESS [None]
  - SUICIDAL IDEATION [None]
